FAERS Safety Report 6356298-6 (Version None)
Quarter: 2009Q3

REPORT INFORMATION
  Report Type: 
  Country: None (occurrence: None)
  Receive Date: 20090914
  Receipt Date: 20090914
  Transmission Date: 20100115
  Serious: Yes (Other)
  Sender: FDA-Public Use
  Company Number: None

PATIENT
  Sex: Male
  Weight: 70.7611 kg

DRUGS (1)
  1. LEVAQUIN [Suspect]

REACTIONS (4)
  - ARTHRALGIA [None]
  - INJURY [None]
  - MUSCLE STRAIN [None]
  - PAIN IN EXTREMITY [None]
